FAERS Safety Report 7464953-X (Version None)
Quarter: 2011Q2

REPORT INFORMATION
  Report Type: 
  Country: None (occurrence: None)
  Receive Date: 20110505
  Receipt Date: 20110505
  Transmission Date: 20111010
  Serious: Yes (Other)
  Sender: FDA-Public Use
  Company Number: None

PATIENT
  Sex: Male
  Weight: 86.4 kg

DRUGS (1)
  1. TUBERSOL [Suspect]
     Indication: IMMUNISATION
     Dosage: USUAL ONCE INTRADERMAL
     Route: 023
     Dates: start: 20110422

REACTIONS (2)
  - INJECTION SITE INDURATION [None]
  - INJECTION SITE VESICLES [None]
